FAERS Safety Report 13614551 (Version 1)
Quarter: 2017Q2

REPORT INFORMATION
  Report Type: Spontaneous
  Country: US (occurrence: US)
  Receive Date: 20170606
  Receipt Date: 20170606
  Transmission Date: 20170830
  Serious: No
  Sender: FDA-Public Use
  Company Number: US-BAYER-2017-103583

PATIENT
  Age: 65 Year
  Sex: Male
  Weight: 62.59 kg

DRUGS (2)
  1. MIRALAX [Suspect]
     Active Substance: POLYETHYLENE GLYCOL 3350
     Indication: GASTROINTESTINAL DISORDER
     Dosage: UNK
     Route: 048
  2. MIRALAX [Suspect]
     Active Substance: POLYETHYLENE GLYCOL 3350
     Indication: GASTROINTESTINAL DISORDER
     Dosage: 2 CAPFULS A DAY IN WATER OR ORANGE JUICE
     Route: 048
     Dates: start: 201704, end: 201704

REACTIONS (3)
  - Product use issue [Unknown]
  - Product use issue [None]
  - Inappropriate prescribing [Unknown]

NARRATIVE: CASE EVENT DATE: 20170531
